FAERS Safety Report 7417216-2 (Version None)
Quarter: 2011Q2

REPORT INFORMATION
  Report Type: 
  Country: None (occurrence: None)
  Receive Date: 20110415
  Receipt Date: 20110216
  Transmission Date: 20111010
  Serious: Yes (Hospitalization, Other)
  Sender: FDA-Public Use
  Company Number: US-BAYER-201023058NA

PATIENT
  Age: 16 Year
  Sex: Female
  Weight: 56.689 kg

DRUGS (28)
  1. ALBUTEROL INHALER [Concomitant]
     Dosage: 2 PUFF(S), PRN
     Route: 055
     Dates: start: 20071111
  2. DROPERIDOL [Concomitant]
     Route: 041
  3. PROZAC [Concomitant]
     Dosage: 10 MG, QD
  4. MIGRAINE MEDICATIONS [Concomitant]
     Indication: MIGRAINE
     Dosage: UNK UNK, PRN
  5. OXYCONTIN [Concomitant]
  6. RESTORIL [Concomitant]
  7. LOVENOX [Concomitant]
     Dosage: UNK
  8. ZOLOFT [Concomitant]
  9. MS CONTIN [Concomitant]
  10. TEMAZEPAM [Concomitant]
  11. PERCOCET [Concomitant]
  12. YASMIN [Suspect]
     Indication: ACNE
     Dosage: UNK
     Dates: start: 20050401, end: 20070216
  13. ALBUTEROL INHALER [Concomitant]
     Indication: ASTHMA
     Dosage: UNK UNK, PRN
     Route: 055
  14. ZOFRAN [Concomitant]
     Dosage: 4 MG, UNK
     Route: 041
  15. LORAZEPAM [Concomitant]
  16. ANTIBIOTICS [Concomitant]
     Dosage: UNK UNK, PRN
  17. PHENERGAN HCL [Concomitant]
  18. NSAID'S [Concomitant]
     Dosage: UNK UNK, PRN
  19. IBUPROFEN [Concomitant]
  20. TRAZODONE [Concomitant]
  21. MORPHINE [Concomitant]
     Dosage: 4 MG, UNK
     Route: 041
  22. ADVAIR DISKUS 100/50 [Concomitant]
  23. ATIVAN [Concomitant]
     Dosage: 0.5 MG, UNK
     Route: 048
  24. ASPIRIN [Concomitant]
  25. YAZ [Suspect]
     Indication: PRODUCT USED FOR UNKNOWN INDICATION
     Route: 048
     Dates: start: 20050401, end: 20070201
  26. MECLIZINE [Concomitant]
  27. FENTANYL [Concomitant]
     Route: 041
  28. ACETAMINOPHEN [Concomitant]

REACTIONS (2)
  - PULMONARY EMBOLISM [None]
  - PAIN [None]
